FAERS Safety Report 4785829-2 (Version None)
Quarter: 2005Q3

REPORT INFORMATION
  Report Type: 
  Country: None (occurrence: None)
  Receive Date: 20050926
  Receipt Date: 20050912
  Transmission Date: 20060218
  Serious: Yes (Hospitalization, Other)
  Sender: FDA-Public Use
  Company Number: HQWYE423213SEP05

PATIENT
  Age: 75 Year
  Sex: Male

DRUGS (1)
  1. BENEFIX [Suspect]
     Indication: FACTOR IX DEFICIENCY
     Dosage: 4800 UNIT 1X PER 1 DAY
     Dates: start: 20050101

REACTIONS (2)
  - DEEP VEIN THROMBOSIS [None]
  - POST PROCEDURAL COMPLICATION [None]
